FAERS Safety Report 5352387-3 (Version None)
Quarter: 2007Q2

REPORT INFORMATION
  Report Type: 
  Country: None (occurrence: None)
  Receive Date: 20070611
  Receipt Date: 20070531
  Transmission Date: 20071010
  Serious: Yes (Other)
  Sender: FDA-Public Use
  Company Number: US-ASTRAZENECA-2006UW08462

PATIENT
  Age: 427 Month
  Sex: Female
  Weight: 90.9 kg

DRUGS (7)
  1. SEROQUEL [Suspect]
     Indication: DEPRESSION
     Route: 048
  2. SEROQUEL [Suspect]
     Indication: BIPOLAR DISORDER
     Route: 048
  3. SEROQUEL [Suspect]
     Indication: ANXIETY
     Route: 048
  4. SEROQUEL [Suspect]
     Dosage: 25 MG TO 50 MG
     Dates: start: 20050501, end: 20060101
  5. SEROQUEL [Suspect]
     Dosage: 25 MG TO 50 MG
     Dates: start: 20050501, end: 20060101
  6. SEROQUEL [Suspect]
     Dosage: 25 MG TO 50 MG
     Dates: start: 20050501, end: 20060101
  7. CYMBALTA [Concomitant]
     Dosage: 60 MG  TO 120 MG
     Dates: start: 20050501

REACTIONS (1)
  - DIABETIC KETOACIDOSIS [None]
